FAERS Safety Report 8240544-8 (Version None)
Quarter: 2012Q1

REPORT INFORMATION
  Report Type: 
  Country: None (occurrence: None)
  Receive Date: 20120328
  Receipt Date: 20120322
  Transmission Date: 20120608
  Serious: Yes (Other)
  Sender: FDA-Public Use
  Company Number: JP-VERTEX PHARMACEUTICALS INC.-AE-2012-004357

PATIENT
  Age: 74 Year
  Sex: Male

DRUGS (6)
  1. RIBAVIRIN [Concomitant]
     Indication: HEPATITIS C
     Route: 048
  2. PEGINTERFERON [Concomitant]
     Indication: HEPATITIS C
     Route: 051
  3. ZESULAN [Concomitant]
     Route: 048
     Dates: start: 20120209
  4. NERISONA [Concomitant]
     Route: 061
     Dates: start: 20120209
  5. TELAVIC (TELAPREVIR) [Suspect]
     Indication: HEPATITIS C
     Route: 048
     Dates: start: 20120202
  6. PREDNISOLONE [Concomitant]
     Route: 048
     Dates: start: 20120209

REACTIONS (2)
  - HYPERURICAEMIA [None]
  - RENAL DISORDER [None]
